FAERS Safety Report 6280498-7 (Version None)
Quarter: 2009Q3

REPORT INFORMATION
  Report Type: 
  Country: None (occurrence: None)
  Receive Date: 20090724
  Receipt Date: 20080801
  Transmission Date: 20100115
  Serious: No
  Sender: FDA-Public Use
  Company Number: A0740932A

PATIENT
  Age: 59 Year
  Sex: Female

DRUGS (7)
  1. AVANDIA [Suspect]
     Dosage: 4MG PER DAY
     Route: 048
     Dates: start: 20080301, end: 20080801
  2. AMLODIPINE [Suspect]
     Route: 048
     Dates: start: 20080418, end: 20080601
  3. MICARDIS [Suspect]
     Route: 048
     Dates: end: 20080418
  4. FUROSEMIDE [Concomitant]
  5. AVALIDE [Concomitant]
  6. HUMULIN 70/30 [Concomitant]
  7. JANUVIA [Concomitant]
     Dosage: 100MG PER DAY
     Dates: start: 20080601

REACTIONS (4)
  - DYSPEPSIA [None]
  - HYPERTENSION [None]
  - OEDEMA PERIPHERAL [None]
  - PALPITATIONS [None]
